FAERS Safety Report 11524421 (Version 1)
Quarter: 2015Q3

REPORT INFORMATION
  Report Type: Spontaneous
  Country: US (occurrence: US)
  Receive Date: 20150903
  Receipt Date: 20150903
  Transmission Date: 20151125
  Serious: No
  Sender: FDA-Public Use
  Company Number: US-ELI_LILLY_AND_COMPANY-US201306001853

PATIENT
  Age: 55 Year
  Sex: Female

DRUGS (5)
  1. LEVOTHYROXINE. [Concomitant]
     Active Substance: LEVOTHYROXINE
  2. SEROQUEL [Concomitant]
     Active Substance: QUETIAPINE FUMARATE
  3. CYMBALTA [Suspect]
     Active Substance: DULOXETINE HYDROCHLORIDE
     Indication: DEPRESSION
     Dosage: 60 MG, QD
     Dates: start: 201301
  4. CLONOPIN [Concomitant]
     Active Substance: CLONAZEPAM
  5. LITHIUM. [Concomitant]
     Active Substance: LITHIUM

REACTIONS (5)
  - Depression [Unknown]
  - Thinking abnormal [Unknown]
  - Drug ineffective [Unknown]
  - Night sweats [Unknown]
  - Insomnia [Unknown]
